FAERS Safety Report 7053792-X (Version None)
Quarter: 2010Q4

REPORT INFORMATION
  Report Type: 
  Country: None (occurrence: None)
  Receive Date: 20101020
  Receipt Date: 20101012
  Transmission Date: 20110411
  Serious: Yes (Hospitalization, Other)
  Sender: FDA-Public Use
  Company Number: B0680073A

PATIENT
  Age: 22 Year
  Sex: Male

DRUGS (1)
  1. AUGMENTIN '125' [Suspect]
     Dosage: 2G PER DAY
     Route: 065

REACTIONS (2)
  - ANAEMIA [None]
  - HYPOVOLAEMIC SHOCK [None]
